FAERS Safety Report 9698233 (Version 1)
Quarter: 2013Q4

REPORT INFORMATION
  Report Type: Spontaneous
  Country: FR (occurrence: FR)
  Receive Date: 20131120
  Receipt Date: 20131120
  Transmission Date: 20140711
  Serious: Yes (Hospitalization)
  Sender: FDA-Public Use
  Company Number: FR-ROCHE-1303083

PATIENT
  Age: 56 Year
  Sex: Male

DRUGS (7)
  1. PEGASYS [Suspect]
     Indication: HEPATITIS C VIRUS TEST POSITIVE
     Route: 058
     Dates: start: 20130513, end: 20130729
  2. COPEGUS [Suspect]
     Indication: HEPATITIS C VIRUS TEST POSITIVE
     Route: 048
     Dates: start: 20130513, end: 20130729
  3. SEROPLEX [Concomitant]
     Route: 065
     Dates: start: 2012, end: 201309
  4. INEXIUM [Concomitant]
     Indication: PRODUCT USED FOR UNKNOWN INDICATION
     Route: 065
  5. PROPRANOLOL [Concomitant]
     Route: 065
  6. MECIR [Concomitant]
  7. LYRICA [Concomitant]
     Route: 065

REACTIONS (1)
  - Pancytopenia [Recovered/Resolved]
